FAERS Safety Report 9852417 (Version 1)
Quarter: 2014Q1

REPORT INFORMATION
  Report Type: Spontaneous
  Country: US (occurrence: None)
  Receive Date: 20140128
  Receipt Date: 20140128
  Transmission Date: 20141002
  Serious: Yes (Life-Threatening, Hospitalization, Disabling)
  Sender: FDA-Public Use
  Company Number: None

PATIENT
  Age: 33 Year
  Sex: Female
  Weight: 77.11 kg

DRUGS (1)
  1. ACETAZOLAMIDE [Suspect]
     Indication: BENIGN INTRACRANIAL HYPERTENSION
     Route: 048
     Dates: start: 20130608, end: 20131211

REACTIONS (17)
  - Retching [None]
  - Change of bowel habit [None]
  - Abdominal pain lower [None]
  - Nausea [None]
  - Vomiting [None]
  - Diarrhoea [None]
  - Parosmia [None]
  - Decreased appetite [None]
  - Weight decreased [None]
  - Dehydration [None]
  - Anion gap [None]
  - Metabolic acidosis [None]
  - Arthralgia [None]
  - Paraesthesia [None]
  - Delirium [None]
  - Cognitive disorder [None]
  - Hypokalaemia [None]
